FAERS Safety Report 18362107 (Version 2)
Quarter: 2020Q4

REPORT INFORMATION
  Report Type: Report from Study
  Country: None (occurrence: US)
  Receive Date: 20201009
  Receipt Date: 20201119
  Transmission Date: 20210114
  Serious: Yes (Hospitalization)
  Sender: FDA-Public Use
  Company Number: US-ABBVIE-20K-163-3479812-00

PATIENT
  Sex: Female

DRUGS (1)
  1. HUMIRA [Suspect]
     Active Substance: ADALIMUMAB
     Indication: RHEUMATOID ARTHRITIS
     Dosage: CF
     Route: 058

REACTIONS (5)
  - Diabetes mellitus [Not Recovered/Not Resolved]
  - Helicobacter infection [Recovered/Resolved]
  - Back pain [Not Recovered/Not Resolved]
  - Abdominal pain upper [Unknown]
  - Rheumatoid arthritis [Not Recovered/Not Resolved]
